FAERS Safety Report 9261293 (Version 1)
Quarter: 2013Q2

REPORT INFORMATION
  Report Type: Spontaneous
  Country: ZA (occurrence: ZA)
  Receive Date: 20130429
  Receipt Date: 20130429
  Transmission Date: 20140414
  Serious: Yes (Hospitalization)
  Sender: FDA-Public Use
  Company Number: ZA-VIIV HEALTHCARE LIMITED-B0842972A

PATIENT
  Age: 12 Year
  Sex: Male

DRUGS (8)
  1. LAMIVUDINE-HIV [Suspect]
     Indication: ANTIVIRAL TREATMENT
     Route: 065
  2. ABACAVIR [Suspect]
     Indication: ANTIVIRAL TREATMENT
     Route: 065
  3. EFAVIRENZ [Suspect]
     Indication: ANTIVIRAL TREATMENT
     Route: 065
  4. AMIKACIN [Suspect]
     Indication: TUBERCULOSIS
     Route: 065
  5. OFLOXACIN [Suspect]
     Indication: TUBERCULOSIS
     Route: 065
  6. TERIZIDONE [Suspect]
     Indication: ANTIVIRAL TREATMENT
     Route: 065
  7. THALIDOMIDE [Suspect]
     Indication: PRODUCT USED FOR UNKNOWN INDICATION
     Route: 065
  8. PREDNISONE [Concomitant]
     Indication: ANTIVIRAL TREATMENT
     Route: 065

REACTIONS (10)
  - Immune reconstitution inflammatory syndrome associated tuberculosis [Recovered/Resolved]
  - Headache [Unknown]
  - Vomiting [Unknown]
  - Somnolence [Unknown]
  - Intracranial pressure increased [Unknown]
  - Papilloedema [Unknown]
  - Intention tremor [Unknown]
  - Cerebellar syndrome [Unknown]
  - Hydrocephalus [Unknown]
  - Stevens-Johnson syndrome [Recovered/Resolved]
